FAERS Safety Report 14711626 (Version 5)
Quarter: 2019Q1

REPORT INFORMATION
  Report Type: Report from Study
  Country: US (occurrence: US)
  Receive Date: 20180403
  Receipt Date: 20190109
  Transmission Date: 20190417
  Serious: Yes (Death, Other)
  Sender: FDA-Public Use
  Company Number: US-ACTELION-A-NJ2018-169695

PATIENT
  Age: 80 Year
  Sex: Female
  Weight: 59.86 kg

DRUGS (4)
  1. ADCIRCA [Concomitant]
     Active Substance: TADALAFIL
  2. OPSUMIT [Suspect]
     Active Substance: MACITENTAN
     Indication: PULMONARY ARTERIAL HYPERTENSION
     Dosage: 10 MG, QD
     Route: 048
  3. VELETRI [Suspect]
     Active Substance: EPOPROSTENOL
     Indication: PULMONARY ARTERIAL HYPERTENSION
     Dosage: 63 NG/KG, PER MIN
     Route: 042
     Dates: end: 20181227
  4. VELETRI [Suspect]
     Active Substance: EPOPROSTENOL
     Dosage: 58 NG/KG, PER MIN
     Route: 042

REACTIONS (5)
  - Rash [Not Recovered/Not Resolved]
  - Therapeutic procedure [Unknown]
  - Back pain [Unknown]
  - Death [Fatal]
  - Lumbar vertebral fracture [Unknown]

NARRATIVE: CASE EVENT DATE: 20180501
